FAERS Safety Report 5014346-X (Version None)
Quarter: 2006Q2

REPORT INFORMATION
  Report Type: 
  Country: None (occurrence: None)
  Receive Date: 20060411
  Receipt Date: 20060223
  Transmission Date: 20061013
  Serious: No
  Sender: FDA-Public Use
  Company Number: A03200601055

PATIENT
  Age: 69 Year
  Sex: Male

DRUGS (3)
  1. UROXATRAL [Suspect]
     Indication: BENIGN PROSTATIC HYPERPLASIA
     Dosage: 10 MG QD - ORAL TABLET
     Route: 048
     Dates: start: 20060222
  2. ALLOPURINOL [Concomitant]
  3. FINASTERIDE [Concomitant]

REACTIONS (3)
  - DIZZINESS [None]
  - FALL [None]
  - HYPERHIDROSIS [None]
